FAERS Safety Report 7529717-7 (Version None)
Quarter: 2011Q2

REPORT INFORMATION
  Report Type: 
  Country: None (occurrence: None)
  Receive Date: 20110607
  Receipt Date: 20110530
  Transmission Date: 20111010
  Serious: Yes (Other)
  Sender: FDA-Public Use
  Company Number: B0723267A

PATIENT
  Age: 16 Year
  Sex: Male

DRUGS (1)
  1. LAMICTAL [Suspect]
     Indication: EPILEPSY
     Dosage: 40MG PER DAY
     Route: 048
     Dates: start: 20090101

REACTIONS (1)
  - JOINT DISLOCATION [None]
